FAERS Safety Report 19394217 (Version 1)
Quarter: 2021Q2

REPORT INFORMATION
  Report Type: Spontaneous
  Country: US (occurrence: US)
  Receive Date: 20210608
  Receipt Date: 20210608
  Transmission Date: 20210717
  Serious: Yes (Other)
  Sender: FDA-Public Use
  Company Number: None

PATIENT
  Age: 86 Year
  Sex: Female
  Weight: 44.91 kg

DRUGS (17)
  1. ELIQUIS [Suspect]
     Active Substance: APIXABAN
  2. SENIOR 1 A DAY [Concomitant]
  3. ARTICAINE [Suspect]
     Active Substance: ARTICAINE
     Indication: DENTAL CARIES
  4. VITAMIN B [Concomitant]
     Active Substance: VITAMIN B
  5. MAGNESIUM [Concomitant]
     Active Substance: MAGNESIUM
  6. PROBIOTIC [Concomitant]
     Active Substance: PROBIOTICS NOS
  7. CALCIUM [Concomitant]
     Active Substance: CALCIUM
  8. COENZYME Q10 [Concomitant]
     Active Substance: DIETARY SUPPLEMENT\UBIDECARENONE
  9. BORON [Concomitant]
     Active Substance: BORON
  10. LISINOPRIL. [Suspect]
     Active Substance: LISINOPRIL
  11. OXYBUTYNIN. [Suspect]
     Active Substance: OXYBUTYNIN CHLORIDE
  12. VALACYCLOVIR [Suspect]
     Active Substance: VALACYCLOVIR HYDROCHLORIDE
  13. AMLODIPINE [Suspect]
     Active Substance: AMLODIPINE BESYLATE
  14. VITAMIN A [Concomitant]
     Active Substance: VITAMIN A
  15. VITAMIN C [Concomitant]
     Active Substance: ASCORBIC ACID
  16. VITAMIN D [Concomitant]
     Active Substance: VITAMIN D NOS
  17. LUTEIN [Concomitant]
     Active Substance: LUTEIN

REACTIONS (5)
  - Cough [None]
  - Rhinorrhoea [None]
  - Body temperature increased [None]
  - Dry mouth [None]
  - Chills [None]

NARRATIVE: CASE EVENT DATE: 20210406
